FAERS Safety Report 7278957-3 (Version None)
Quarter: 2011Q1

REPORT INFORMATION
  Report Type: 
  Country: None (occurrence: None)
  Receive Date: 20110207
  Receipt Date: 20110125
  Transmission Date: 20110831
  Serious: Yes (Hospitalization)
  Sender: FDA-Public Use
  Company Number: PHHY2011US05823

PATIENT
  Sex: Male
  Weight: 109 kg

DRUGS (7)
  1. TASIGNA [Suspect]
     Indication: CHRONIC MYELOID LEUKAEMIA
     Dosage: 300 MG, BID
     Route: 048
     Dates: start: 20101228, end: 20110104
  2. LISINOPRIL [Concomitant]
  3. ZOFRAN [Concomitant]
  4. INDOCIN [Concomitant]
  5. ALLOPURINOL [Concomitant]
  6. CLONIDINE [Concomitant]
  7. METOPROLOL TARTRATE [Concomitant]

REACTIONS (3)
  - PANCREATITIS [None]
  - ABDOMINAL PAIN [None]
  - BLOOD AMYLASE INCREASED [None]
